FAERS Safety Report 5376016-8 (Version None)
Quarter: 2007Q3

REPORT INFORMATION
  Report Type: 
  Country: None (occurrence: None)
  Receive Date: 20070702
  Receipt Date: 20070628
  Transmission Date: 20080115
  Serious: Yes (Hospitalization, Other)
  Sender: FDA-Public Use
  Company Number: HQWYE063011MAR05

PATIENT
  Sex: Male

DRUGS (6)
  1. RAPAMUNE [Suspect]
     Indication: PROPHYLAXIS AGAINST TRANSPLANT REJECTION
     Route: 048
     Dates: start: 20041229
  2. RAPAMUNE [Suspect]
     Indication: IMMUNOSUPPRESSANT DRUG THERAPY
  3. SULFAMETHOXAZOLE AND TRIMETHOPRIM [Concomitant]
     Dosage: 400/80 MG DAILY
     Route: 048
     Dates: start: 20041231
  4. ATENOLOL [Suspect]
     Route: 048
     Dates: start: 20050104
  5. CYCLOSPORINE [Concomitant]
     Route: 048
     Dates: start: 20041227
  6. PREDNISONE [Concomitant]
     Route: 048
     Dates: start: 20041227

REACTIONS (1)
  - RENAL IMPAIRMENT [None]
